FAERS Safety Report 4376074-3 (Version None)
Quarter: 2004Q2

REPORT INFORMATION
  Report Type: 
  Country: None (occurrence: None)
  Receive Date: 20040611
  Receipt Date: 20040601
  Transmission Date: 20050107
  Serious: Yes (Life-Threatening, Hospitalization)
  Sender: FDA-Public Use
  Company Number: US-BRISTOL-MYERS SQUIBB COMPANY-12600771

PATIENT
  Age: 57 Year
  Sex: Male
  Weight: 108 kg

DRUGS (3)
  1. TAXOL [Suspect]
     Indication: PROSTATE CANCER
     Route: 042
     Dates: start: 20040511, end: 20040511
  2. VP-16 [Suspect]
     Indication: PROSTATE CANCER
     Dosage: 1 CYCLE
     Route: 048
     Dates: start: 20040510, end: 20040523
  3. EMCYT [Suspect]
     Indication: PROSTATE CANCER
     Dosage: 1 CYCLE 140 MG: 2 TID
     Route: 048
     Dates: start: 20040510, end: 20040523

REACTIONS (1)
  - HYDRONEPHROSIS [None]
